FAERS Safety Report 8613993-3 (Version None)
Quarter: 2012Q3

REPORT INFORMATION
  Report Type: 
  Country: None (occurrence: None)
  Receive Date: 20120823
  Receipt Date: 20120820
  Transmission Date: 20120928
  Serious: No
  Sender: FDA-Public Use
  Company Number: US-PFIZER INC-2012146381

PATIENT
  Age: 75 Year
  Sex: Male

DRUGS (1)
  1. XALKORI [Suspect]
     Indication: MALIGNANT RESPIRATORY TRACT NEOPLASM
     Dosage: 250 MG, 2X/DAY BID
     Dates: start: 20111230

REACTIONS (4)
  - NEUROPATHY PERIPHERAL [None]
  - GASTROOESOPHAGEAL REFLUX DISEASE [None]
  - FOREIGN BODY [None]
  - OEDEMA PERIPHERAL [None]
